FAERS Safety Report 23357571 (Version 2)
Quarter: 2024Q1

REPORT INFORMATION
  Report Type: Report from Study
  Country: BY (occurrence: BY)
  Receive Date: 20240102
  Receipt Date: 20240108
  Transmission Date: 20240410
  Serious: Yes (Death, Hospitalization)
  Sender: FDA-Public Use
  Company Number: BY-MYLANLABS-2023M1138688

PATIENT
  Age: 68 Year
  Sex: Male
  Weight: 60 kg

DRUGS (4)
  1. PRETOMANID [Suspect]
     Active Substance: PRETOMANID
     Indication: Product used for unknown indication
     Dosage: 200 MILLIGRAM, QD
     Route: 048
     Dates: start: 20220413, end: 20220804
  2. BEDAQUILINE [Suspect]
     Active Substance: BEDAQUILINE
     Indication: Product used for unknown indication
     Dosage: 200 MILLIGRAM,3XW
     Route: 048
     Dates: start: 20220413, end: 20220804
  3. LINEZOLID [Suspect]
     Active Substance: LINEZOLID
     Indication: Product used for unknown indication
     Dosage: 300 MILLIGRAM, QD
     Route: 048
     Dates: start: 20220413, end: 20220804
  4. MOXIFLOXACIN [Suspect]
     Active Substance: MOXIFLOXACIN
     Indication: Product used for unknown indication
     Dosage: 400 MILLIGRAM, QD
     Route: 048
     Dates: start: 20220413, end: 20220804

REACTIONS (3)
  - Coronary artery disease [Fatal]
  - Alcohol poisoning [Fatal]
  - Alcohol abuse [Unknown]

NARRATIVE: CASE EVENT DATE: 20221009
